FAERS Safety Report 23403176 (Version 1)
Quarter: 2024Q1

REPORT INFORMATION
  Report Type: Other
  Country: US (occurrence: None)
  Receive Date: 20240116
  Receipt Date: 20240116
  Transmission Date: 20240409
  Serious: Yes (Other)
  Sender: FDA-Public Use
  Company Number: US-ROCHE-3491732

PATIENT
  Age: 70 Year
  Sex: Male

DRUGS (9)
  1. ESBRIET [Suspect]
     Active Substance: PIRFENIDONE
     Indication: Idiopathic pulmonary fibrosis
     Dosage: 1 TABLET BY MOUTH 3 TIMES A DAY WITH MEALS FOR 7 DAYS. THEN, TAKE 2 TABLETS BY MOUTH 3 TIMES A DAY W
     Route: 048
  2. ESBRIET [Suspect]
     Active Substance: PIRFENIDONE
     Indication: Chronic respiratory failure
  3. ESBRIET [Suspect]
     Active Substance: PIRFENIDONE
     Indication: Hypoxia
  4. ESBRIET [Suspect]
     Active Substance: PIRFENIDONE
     Indication: Obstructive sleep apnoea syndrome
  5. ESBRIET [Suspect]
     Active Substance: PIRFENIDONE
     Indication: Pneumonia
  6. ESBRIET [Suspect]
     Active Substance: PIRFENIDONE
     Indication: Lung infiltration
  7. ESBRIET [Suspect]
     Active Substance: PIRFENIDONE
     Indication: Obesity
  8. ESBRIET [Suspect]
     Active Substance: PIRFENIDONE
     Indication: Infection
  9. ESBRIET [Suspect]
     Active Substance: PIRFENIDONE
     Indication: Blood creatine phosphokinase increased

REACTIONS (1)
  - Cerebrovascular accident [Unknown]
